FAERS Safety Report 24070697 (Version 1)
Quarter: 2024Q3

REPORT INFORMATION
  Report Type: Spontaneous
  Country: US (occurrence: None)
  Receive Date: 20240709
  Receipt Date: 20240709
  Transmission Date: 20241017
  Serious: Yes (Hospitalization)
  Sender: Public
  Company Number: None

PATIENT
  Sex: Female

DRUGS (1)
  1. HUMIRA [Suspect]
     Active Substance: ADALIMUMAB
     Indication: Psoriatic arthropathy
     Dosage: OTHER QUANTITY : 40MG/0.4ML;?OTHER FREQUENCY : EVERY 14 DAYS;?
     Route: 058
     Dates: start: 202406

REACTIONS (4)
  - Abdominal discomfort [None]
  - Vomiting [None]
  - Dehydration [None]
  - Electrolyte imbalance [None]

NARRATIVE: CASE EVENT DATE: 20240703
